FAERS Safety Report 6255992-5 (Version None)
Quarter: 2009Q3

REPORT INFORMATION
  Report Type: 
  Country: None (occurrence: None)
  Receive Date: 20090706
  Receipt Date: 20090703
  Transmission Date: 20100115
  Serious: Yes (Life-Threatening)
  Sender: FDA-Public Use
  Company Number: IT-PFIZER INC-2009215126

PATIENT
  Age: 84 Year

DRUGS (11)
  1. ZYVOXID [Suspect]
     Indication: RESPIRATORY TRACT INFECTION
     Dosage: 600 MG, 1X/DAY
     Route: 048
     Dates: start: 20090214, end: 20090223
  2. SPORANOX [Concomitant]
  3. DELTACORTENE [Concomitant]
  4. TERAPROST [Concomitant]
  5. FINASTERIDE [Concomitant]
  6. LASIX [Concomitant]
  7. CARVEDILOL [Concomitant]
  8. ALLOPURINOL [Concomitant]
  9. TRINIPLAS [Concomitant]
  10. SPIRIVA [Concomitant]
  11. EFFERALGAN [Concomitant]

REACTIONS (3)
  - ANAEMIA [None]
  - HAEMOLYSIS [None]
  - LEUKOPENIA [None]
